FAERS Safety Report 14707704 (Version 2)
Quarter: 2018Q2

REPORT INFORMATION
  Report Type: Report from Study
  Country: DE (occurrence: DE)
  Receive Date: 20180403
  Receipt Date: 20180413
  Transmission Date: 20180711
  Serious: Yes (Other)
  Sender: FDA-Public Use
  Company Number: DE-TORRENT-00007994

PATIENT
  Age: 7 Month

DRUGS (3)
  1. SILDENAFIL. [Suspect]
     Active Substance: SILDENAFIL
     Indication: PULMONARY HYPERTENSION
     Dosage: INFUSION OF 1.6 MG/KG/D, INTRAVENOUS SILDENAFIL WAS SWITCHED TO ORAL MEDICATION
     Route: 042
  2. BOSENTAN. [Suspect]
     Active Substance: BOSENTAN
     Indication: PULMONARY HYPERTENSION
     Dosage: UNKNOWN
  3. SILDENAFIL. [Suspect]
     Active Substance: SILDENAFIL
     Indication: PULMONARY HYPERTENSION
     Dosage: INFUSION OF 1.6 MG/KG/D, INTRAVENOUS SILDENAFIL WAS SWITCHED TO ORAL MEDICATION
     Route: 048

REACTIONS (2)
  - Drug administered to patient of inappropriate age [Unknown]
  - Respiratory failure [Recovering/Resolving]
